FAERS Safety Report 11894995 (Version 4)
Quarter: 2016Q3

REPORT INFORMATION
  Report Type: Report from Study
  Country: US (occurrence: US)
  Receive Date: 20160107
  Receipt Date: 20160912
  Transmission Date: 20161109
  Serious: Yes (Hospitalization)
  Sender: FDA-Public Use
  Company Number: US-BAYER-2015-497743

PATIENT
  Age: 70 Year
  Sex: Female

DRUGS (7)
  1. ADEMPAS [Suspect]
     Active Substance: RIOCIGUAT
     Indication: PULMONARY ARTERIAL HYPERTENSION
     Dosage: 1 MG, TID
     Route: 048
  2. TYVASO [Suspect]
     Active Substance: TREPROSTINIL
  3. ADEMPAS [Suspect]
     Active Substance: RIOCIGUAT
     Indication: PULMONARY ARTERIAL HYPERTENSION
     Dosage: UNK
     Dates: start: 20151029
  4. ADEMPAS [Suspect]
     Active Substance: RIOCIGUAT
     Indication: PULMONARY ARTERIAL HYPERTENSION
     Dosage: 2.5 MG, TID
     Route: 048
     Dates: start: 20160311
  5. ADEMPAS [Suspect]
     Active Substance: RIOCIGUAT
     Indication: PULMONARY ARTERIAL HYPERTENSION
     Dosage: 2.5 MG, TID
     Route: 048
     Dates: start: 20151029
  6. ADEMPAS [Suspect]
     Active Substance: RIOCIGUAT
     Indication: PULMONARY ARTERIAL HYPERTENSION
     Dosage: UNK
     Dates: start: 20151214
  7. UPTRAVI [Concomitant]
     Active Substance: SELEXIPAG

REACTIONS (22)
  - Pain [None]
  - Pain [None]
  - Headache [None]
  - Balance disorder [None]
  - Hypersomnia [None]
  - Headache [Not Recovered/Not Resolved]
  - Speech disorder [None]
  - International normalised ratio increased [None]
  - Balance disorder [None]
  - Vision blurred [None]
  - Skin ulcer [None]
  - Nausea [Not Recovered/Not Resolved]
  - Abdominal pain [Not Recovered/Not Resolved]
  - Epistaxis [None]
  - Dyspepsia [None]
  - Nausea [None]
  - Balance disorder [None]
  - Gait disturbance [None]
  - Frequent bowel movements [Not Recovered/Not Resolved]
  - Dizziness [None]
  - Dyspnoea [None]
  - Dyspnoea [None]

NARRATIVE: CASE EVENT DATE: 20151219
